FAERS Safety Report 9937160 (Version 1)
Quarter: 2014Q1

REPORT INFORMATION
  Report Type: Report from Study
  Country: NL (occurrence: NL)
  Receive Date: 20140301
  Receipt Date: 20140301
  Transmission Date: 20141002
  Serious: Yes (Hospitalization)
  Sender: FDA-Public Use
  Company Number: NL-ROCHE-1352640

PATIENT
  Age: 25 Year
  Sex: Female
  Weight: 63.3 kg

DRUGS (6)
  1. RITUXIMAB [Suspect]
     Indication: SCLERODERMA
     Dosage: DATE OF LAST DOSE:30/JAN/2014
     Route: 042
     Dates: start: 20130703
  2. METHYLPREDNISOLONE [Suspect]
     Indication: SCLERODERMA
     Dosage: DATE OF LAST DOSE : 30/JAN/2014.
     Route: 042
     Dates: start: 20130703
  3. BOSENTAN [Suspect]
     Indication: SCLERODERMA
     Route: 065
     Dates: start: 20130925
  4. TRAMADOL [Suspect]
     Indication: SCLERODERMA
     Route: 065
     Dates: start: 20140213
  5. METHOTREXATE [Suspect]
     Indication: SCLERODERMA
     Route: 065
     Dates: start: 20131021
  6. FOLIC ACID [Concomitant]
     Route: 065
     Dates: start: 20131022

REACTIONS (1)
  - Skin ulcer [Unknown]
